FAERS Safety Report 9147987 (Version 1)
Quarter: 2013Q1

REPORT INFORMATION
  Report Type: Spontaneous
  Country: NL (occurrence: NL)
  Receive Date: 20130307
  Receipt Date: 20130307
  Transmission Date: 20140127
  Serious: Yes (Hospitalization)
  Sender: FDA-Public Use
  Company Number: NL-AMGEN-NLDSP2013014581

PATIENT
  Age: 44 Year
  Sex: Female

DRUGS (3)
  1. NEULASTA [Suspect]
     Indication: BREAST CANCER METASTATIC
     Dosage: UNK
  2. PARACETAMOL [Concomitant]
     Dosage: 1000 MG, UNK
  3. CHEMOTHERAPEUTICS [Concomitant]
     Indication: BREAST CANCER METASTATIC
     Dosage: UNK

REACTIONS (9)
  - Pyrexia [Recovered/Resolved]
  - Irritable bowel syndrome [Unknown]
  - Constipation [Recovered/Resolved]
  - Pain in extremity [Recovered/Resolved]
  - Back pain [Recovered/Resolved]
  - Headache [Recovered/Resolved]
  - Osteoarthritis [Unknown]
  - Drug intolerance [Unknown]
  - White blood cell count increased [Unknown]
